FAERS Safety Report 9390840 (Version 1)
Quarter: 2013Q3

REPORT INFORMATION
  Report Type: Spontaneous
  Country: US (occurrence: None)
  Receive Date: 20130705
  Receipt Date: 20130705
  Transmission Date: 20140515
  Serious: Yes (Other)
  Sender: FDA-Public Use
  Company Number: 1787112

PATIENT
  Age: 82 Year
  Sex: Female
  Weight: 74 kg

DRUGS (20)
  1. (PROPOFOL) [Suspect]
     Indication: INDUCTION OF ANAESTHESIA
  2. ROCURONIUM BROMIDE [Suspect]
     Indication: ENDOTRACHEAL INTUBATION
  3. ROCURONIUM BROMIDE [Suspect]
     Indication: RELAXATION THERAPY
  4. DESFLURANE [Suspect]
     Indication: ANAESTHESIA
     Dosage: RESPIRATORY?
     Route: 055
  5. ANTIGLAUCOMA PREPARATIONS AND MIOTICS) [Concomitant]
  6. DORZOLAMIDE) [Concomitant]
  7. (PREDNISOLONE /00016204/) [Concomitant]
  8. (EZETIMIBE) [Concomitant]
  9. (PREVASTATIN) [Concomitant]
  10. (GLYBURIDE) [Concomitant]
  11. (INSULIN GLARGINE) [Concomitant]
  12. (HYDROCHLOROTHIAZIDE) [Concomitant]
  13. (LISINOPRIL) [Concomitant]
  14. (ASPIRIN) [Concomitant]
  15. (CALCIUM W/VITAMIN D /07457301/) [Concomitant]
  16. (MIDAZOLAM) [Concomitant]
  17. (FENTANYL) [Concomitant]
  18. (HYDROMORPHONE) [Concomitant]
  19. (AMPICILLIN AND SULBACTAM) [Concomitant]
  20. (OXYGEN) [Concomitant]

REACTIONS (2)
  - Hypokalaemia [None]
  - Neuromuscular block prolonged [None]
